FAERS Safety Report 5960424-8 (Version None)
Quarter: 2008Q4

REPORT INFORMATION
  Report Type: 
  Country: None (occurrence: None)
  Receive Date: 20081112
  Receipt Date: 20080401
  Transmission Date: 20090506
  Serious: Yes (Other)
  Sender: FDA-Public Use
  Company Number: US-JNJFOC-20080402245

PATIENT
  Sex: Male

DRUGS (2)
  1. IBUPROFEN [Suspect]
     Indication: BACK PAIN
  2. NAPROXEN [Suspect]
     Indication: BACK PAIN

REACTIONS (2)
  - CONSTIPATION [None]
  - HAEMORRHAGE [None]
